FAERS Safety Report 9373292 (Version 1)
Quarter: 2013Q2

REPORT INFORMATION
  Report Type: Spontaneous
  Country: US (occurrence: US)
  Receive Date: 20130627
  Receipt Date: 20130627
  Transmission Date: 20140414
  Serious: No
  Sender: FDA-Public Use
  Company Number: US-TEVA-415436USA

PATIENT
  Sex: Female

DRUGS (1)
  1. ACTIQ [Suspect]
     Indication: BREAKTHROUGH PAIN
     Route: 048

REACTIONS (4)
  - Drug ineffective [Unknown]
  - Drug effect increased [Unknown]
  - Abdominal pain upper [Unknown]
  - Incorrect dose administered [Unknown]
